FAERS Safety Report 7568320-X (Version None)
Quarter: 2011Q2

REPORT INFORMATION
  Report Type: 
  Country: None (occurrence: None)
  Receive Date: 20110623
  Receipt Date: 20110603
  Transmission Date: 20111010
  Serious: Yes (Hospitalization)
  Sender: FDA-Public Use
  Company Number: A0797208A

PATIENT
  Age: 74 Year
  Sex: Male
  Weight: 95.5 kg

DRUGS (5)
  1. METFORMIN HCL [Concomitant]
  2. GLIPIZIDE [Concomitant]
  3. INSULIN [Concomitant]
  4. LIPITOR [Concomitant]
  5. AVANDIA [Suspect]
     Dosage: 4MG TWICE PER DAY
     Route: 048
     Dates: start: 20010320

REACTIONS (3)
  - MYOCARDIAL INFARCTION [None]
  - CARDIAC FAILURE CONGESTIVE [None]
  - CORONARY ARTERY DISEASE [None]
